FAERS Safety Report 4675119-0 (Version None)
Quarter: 2005Q2

REPORT INFORMATION
  Report Type: 
  Country: None (occurrence: None)
  Receive Date: 20050525
  Receipt Date: 20050515
  Transmission Date: 20051028
  Serious: Yes (Other)
  Sender: FDA-Public Use
  Company Number: FR-2005-007845

PATIENT
  Age: 19 Year
  Sex: Female

DRUGS (1)
  1. JASMINE(DROSPIRENONE, ETHINYLESTRADIOL) FILM TABLET [Suspect]
     Indication: OEDEMA
     Dosage: 1 TAB(S), 21D/28D, ORAL
     Route: 048
     Dates: start: 20040801, end: 20041201

REACTIONS (1)
  - RAYNAUD'S PHENOMENON [None]
